FAERS Safety Report 8110047-X (Version None)
Quarter: 2012Q1

REPORT INFORMATION
  Report Type: 
  Country: None (occurrence: None)
  Receive Date: 20120202
  Receipt Date: 20120104
  Transmission Date: 20120608
  Serious: Yes (Death)
  Sender: FDA-Public Use
  Company Number: US-COVIDIEN/TYCO HEALTHCARE/MALLINCKRODT-T201200106

PATIENT
  Age: 39 Year
  Sex: Male

DRUGS (4)
  1. MORPHINE [Suspect]
     Route: 048
  2. METHADOSE [Suspect]
     Route: 048
  3. DIAZEPAM [Suspect]
     Route: 048
  4. DEXTROMETHORPHAN [Suspect]
     Route: 048

REACTIONS (4)
  - CARDIAC ARREST [None]
  - CARDIO-RESPIRATORY ARREST [None]
  - RESPIRATORY ARREST [None]
  - TOXICITY TO VARIOUS AGENTS [None]
